FAERS Safety Report 7921088-7 (Version None)
Quarter: 2011Q4

REPORT INFORMATION
  Report Type: 
  Country: None (occurrence: None)
  Receive Date: 20111117
  Receipt Date: 20111114
  Transmission Date: 20120403
  Serious: Yes (Other)
  Sender: FDA-Public Use
  Company Number: US-MERCK-1111USA00001

PATIENT
  Age: 86 Year
  Sex: Female

DRUGS (1)
  1. VYTORIN [Suspect]
     Route: 065

REACTIONS (1)
  - CARDIAC DISORDER [None]
